FAERS Safety Report 7923947-8 (Version None)
Quarter: 2011Q4

REPORT INFORMATION
  Report Type: 
  Country: None (occurrence: None)
  Receive Date: 20111117
  Receipt Date: 20110210
  Transmission Date: 20120403
  Serious: Yes (Other)
  Sender: FDA-Public Use
  Company Number: US-AMGEN-USASP2011008165

PATIENT
  Age: 60 Year
  Sex: Female

DRUGS (2)
  1. ENBREL [Suspect]
     Indication: SYSTEMIC LUPUS ERYTHEMATOSUS
     Dosage: 50 MG, QWK
     Dates: start: 20101201
  2. ENBREL [Suspect]
     Indication: SJOGREN'S SYNDROME

REACTIONS (6)
  - INJECTION SITE SWELLING [None]
  - PHOTOSENSITIVITY REACTION [None]
  - INJECTION SITE WARMTH [None]
  - INJECTION SITE PAIN [None]
  - PARAESTHESIA [None]
  - INJECTION SITE RASH [None]
